FAERS Safety Report 8987925 (Version 1)
Quarter: 2012Q4

REPORT INFORMATION
  Report Type: 
  Country: FR (occurrence: FR)
  Receive Date: 20121227
  Receipt Date: 20121227
  Transmission Date: 20130627
  Serious: Yes (Disabling)
  Sender: FDA-Public Use
  Company Number: FR-ABBOTT-12P-056-1023955-00

PATIENT
  Age: 51 None
  Sex: Male

DRUGS (5)
  1. ZECLAR [Suspect]
     Indication: MYCOBACTERIAL INFECTION
     Route: 048
     Dates: start: 20111215, end: 20120630
  2. ZECLAR [Suspect]
     Indication: TENOSYNOVITIS
  3. MYAMBUTOL [Suspect]
     Indication: MYCOBACTERIAL INFECTION
     Dates: start: 20111215, end: 201205
  4. IZILOX [Suspect]
     Indication: MYCOBACTERIAL INFECTION
     Dates: start: 20120101, end: 20120630
  5. PREVISCAN [Suspect]
     Indication: CEREBRAL VENOUS THROMBOSIS
     Route: 048
     Dates: start: 20120101

REACTIONS (3)
  - Optic neuritis [Not Recovered/Not Resolved]
  - Dysaesthesia [Not Recovered/Not Resolved]
  - Hyperaesthesia [Not Recovered/Not Resolved]
